FAERS Safety Report 10184640 (Version 1)
Quarter: 2014Q2

REPORT INFORMATION
  Report Type: Spontaneous
  Country: DE (occurrence: None)
  Receive Date: 20140519
  Receipt Date: 20140519
  Transmission Date: 20141212
  Serious: Yes (Death)
  Sender: FDA-Public Use
  Company Number: 2014-001338

PATIENT
  Sex: Female

DRUGS (1)
  1. ACTONEL [Suspect]
     Route: 048

REACTIONS (1)
  - Death [None]
